FAERS Safety Report 5156123-5 (Version None)
Quarter: 2006Q4

REPORT INFORMATION
  Report Type: 
  Country: None (occurrence: None)
  Receive Date: 20061122
  Receipt Date: 20061113
  Transmission Date: 20070319
  Serious: Yes (Hospitalization)
  Sender: FDA-Public Use
  Company Number: 2006PK02360

PATIENT
  Age: 19347 Day
  Sex: Female

DRUGS (1)
  1. FASLODEX [Suspect]
     Indication: BREAST CANCER FEMALE
     Route: 030

REACTIONS (2)
  - IMPAIRED HEALING [None]
  - SEROMA [None]
